FAERS Safety Report 10795177 (Version 1)
Quarter: 2015Q1

REPORT INFORMATION
  Report Type: Spontaneous
  Country: US (occurrence: US)
  Receive Date: 20150214
  Receipt Date: 20150214
  Transmission Date: 20150721
  Serious: No
  Sender: FDA-Public Use
  Company Number: US-GLAXOSMITHKLINE-A1055909A

PATIENT

DRUGS (2)
  1. NICODERM CQ [Suspect]
     Active Substance: NICOTINE
     Indication: PRODUCT USED FOR UNKNOWN INDICATION
     Route: 062
     Dates: start: 20140102
  2. NICODERM CQ [Concomitant]
     Active Substance: NICOTINE

REACTIONS (4)
  - Application site swelling [Unknown]
  - Application site reaction [Unknown]
  - Application site rash [Unknown]
  - Application site pruritus [Unknown]
